FAERS Safety Report 5188487-0 (Version None)
Quarter: 2006Q4

REPORT INFORMATION
  Report Type: 
  Country: None (occurrence: None)
  Receive Date: 20061214
  Receipt Date: 20061207
  Transmission Date: 20070319
  Serious: Yes (Hospitalization)
  Sender: FDA-Public Use
  Company Number: 2006BI017922

PATIENT
  Age: 61 Year
  Sex: Female

DRUGS (1)
  1. AVONEX [Suspect]
     Indication: MULTIPLE SCLEROSIS
     Dosage: 30 UG;QW;IM
     Route: 030
     Dates: start: 20040803

REACTIONS (5)
  - DYSPHAGIA [None]
  - DYSPNOEA [None]
  - PNEUMONIA ASPIRATION [None]
  - URINARY TRACT INFECTION [None]
  - VOMITING [None]
